FAERS Safety Report 23274235 (Version 1)
Quarter: 2023Q4

REPORT INFORMATION
  Report Type: Spontaneous
  Country: US (occurrence: US)
  Receive Date: 20231208
  Receipt Date: 20231208
  Transmission Date: 20240110
  Serious: Yes (Life-Threatening, Hospitalization)
  Sender: FDA-Public Use
  Company Number: US-STRIDES ARCOLAB LIMITED-2023SP015648

PATIENT
  Age: 58 Year
  Sex: Female

DRUGS (11)
  1. LOSARTAN [Suspect]
     Active Substance: LOSARTAN
     Indication: Hypertension
     Dosage: UNK
     Route: 065
  2. POTASSIUM CHLORIDE [Suspect]
     Active Substance: POTASSIUM CHLORIDE
     Indication: Mineral supplementation
     Dosage: UNK
     Route: 048
  3. DOXYCYCLINE [Suspect]
     Active Substance: DOXYCYCLINE
     Indication: Bronchitis
     Dosage: UNK
     Route: 065
  4. FLECAINIDE [Suspect]
     Active Substance: FLECAINIDE
     Indication: Atrial fibrillation
     Dosage: UNK
     Route: 065
  5. VITAMINS [Suspect]
     Active Substance: VITAMINS
     Indication: Vitamin supplementation
     Dosage: UNK, DAILY
     Route: 065
  6. ALBUTEROL [Concomitant]
     Active Substance: ALBUTEROL
     Indication: Chronic obstructive pulmonary disease
     Dosage: UNK
     Route: 065
  7. APIXABAN [Concomitant]
     Active Substance: APIXABAN
     Indication: Atrial fibrillation
     Dosage: UNK
     Route: 065
  8. APIXABAN [Concomitant]
     Active Substance: APIXABAN
     Indication: Anticoagulant therapy
  9. FUROSEMIDE [Concomitant]
     Active Substance: FUROSEMIDE
     Indication: Hypertension
     Dosage: UNK
     Route: 065
  10. PREDNISONE [Concomitant]
     Active Substance: PREDNISONE
     Indication: Bronchitis
     Dosage: UNK
     Route: 065
  11. TIOTROPIUM [Concomitant]
     Active Substance: TIOTROPIUM
     Indication: Chronic obstructive pulmonary disease
     Dosage: UNK
     Route: 065

REACTIONS (2)
  - Hyperkalaemia [Recovered/Resolved]
  - Off label use [Unknown]
